FAERS Safety Report 7001607-8 (Version None)
Quarter: 2010Q3

REPORT INFORMATION
  Report Type: 
  Country: None (occurrence: None)
  Receive Date: 20100920
  Receipt Date: 20100914
  Transmission Date: 20110219
  Serious: Yes (Life-Threatening)
  Sender: FDA-Public Use
  Company Number: DE-CELGENEUS-062-21880-10091421

PATIENT
  Age: 65 Year
  Sex: Male

DRUGS (2)
  1. REVLIMID [Suspect]
     Indication: PLASMACYTOMA
     Route: 048
     Dates: start: 20100823, end: 20100830
  2. DEXAMETHASONE [Suspect]
     Indication: PLASMACYTOMA
     Route: 065
     Dates: start: 20100823, end: 20100830

REACTIONS (5)
  - HYPOTENSION [None]
  - LEUKOPENIA [None]
  - NEOPLASM PROGRESSION [None]
  - PLASMACYTOMA [None]
  - THROMBOCYTOPENIA [None]
